FAERS Safety Report 5068717-6 (Version None)
Quarter: 2006Q3

REPORT INFORMATION
  Report Type: 
  Country: None (occurrence: None)
  Receive Date: 20060802
  Receipt Date: 20060227
  Transmission Date: 20061208
  Serious: No
  Sender: FDA-Public Use
  Company Number: US-BRISTOL-MYERS SQUIBB COMPANY-13296231

PATIENT
  Age: 48 Year
  Sex: Female

DRUGS (6)
  1. COUMADIN [Suspect]
  2. CARDIZEM [Concomitant]
  3. CARAFATE [Concomitant]
  4. MIRALAX [Concomitant]
  5. KEPPRA [Concomitant]
  6. PLAVIX [Concomitant]

REACTIONS (1)
  - INTERNATIONAL NORMALISED RATIO ABNORMAL [None]
